FAERS Safety Report 21921489 (Version 2)
Quarter: 2023Q1

REPORT INFORMATION
  Report Type: Report from Study
  Country: PT (occurrence: PT)
  Receive Date: 20230127
  Receipt Date: 20230216
  Transmission Date: 20230418
  Serious: Yes (Other)
  Sender: FDA-Public Use
  Company Number: PT-ABBVIE-4284050

PATIENT
  Age: 70 Year
  Sex: Female

DRUGS (8)
  1. CARBIDOPA\LEVODOPA [Suspect]
     Active Substance: CARBIDOPA\LEVODOPA
     Indication: Parkinson^s disease
     Dosage: 20 MG PLUS 5 MG
     Route: 050
     Dates: start: 20210810
  2. CARBIDOPA\LEVODOPA [Suspect]
     Active Substance: CARBIDOPA\LEVODOPA
     Dosage: 20 MG PLUS 5 MG
     Route: 050
  3. CYANOCOBALAMIN\FOLIC ACID\PYRIDOXINE HYDROCHLORIDE [Concomitant]
     Active Substance: CYANOCOBALAMIN\FOLIC ACID\PYRIDOXINE HYDROCHLORIDE
     Indication: Product used for unknown indication
     Dosage: START DATE TEXT: SINCE BEFORE DUODOPA
  4. RIVOTRIL [Concomitant]
     Active Substance: CLONAZEPAM
     Indication: Product used for unknown indication
     Dosage: 0.5 TABLET?FORM STRENGTH: 2 MILLIGRAM?START DATE TEXT: SINCE BEFORE DUODOPA
  5. ONGENTYS [Concomitant]
     Active Substance: OPICAPONE
     Indication: Parkinson^s disease
     Dosage: FORM STRENGTH: 50 MILLIGRAM
     Dates: start: 20210824
  6. NEUPRO [Concomitant]
     Active Substance: ROTIGOTINE
     Indication: Parkinson^s disease
     Dosage: 6 MILLIGRAM
     Dates: start: 20210824
  7. BEDOZE [Concomitant]
     Indication: Product used for unknown indication
     Dosage: START DATE TEXT: SINCE BEFORE DUODOPA
  8. CINET [Concomitant]
     Indication: Product used for unknown indication
     Dosage: TIME INTERVAL: 0.33333333 DAYS: START DATE TEXT: SINCE BEFORE DUODOPA

REACTIONS (4)
  - Constipation [Recovered/Resolved]
  - Abdominal rigidity [Recovered/Resolved]
  - Gastrointestinal disorder [Recovered/Resolved]
  - Abdominal pain [Recovered/Resolved]

NARRATIVE: CASE EVENT DATE: 20230115
